FAERS Safety Report 18318223 (Version 3)
Quarter: 2021Q1

REPORT INFORMATION
  Report Type: Spontaneous
  Country: US (occurrence: US)
  Receive Date: 20200928
  Receipt Date: 20210112
  Transmission Date: 20210419
  Serious: No
  Sender: FDA-Public Use
  Company Number: US-PFIZER INC-2020366824

PATIENT
  Age: 71 Year
  Sex: Female
  Weight: 99.79 kg

DRUGS (1)
  1. CELECOXIB. [Suspect]
     Active Substance: CELECOXIB
     Indication: ARTHRITIS
     Dosage: 200 MG, 1X/DAY (200MG ONCE A DAY BY MOUTH)
     Route: 048

REACTIONS (1)
  - Drug ineffective [Unknown]
